FAERS Safety Report 20854757 (Version 1)
Quarter: 2022Q2

REPORT INFORMATION
  Report Type: Spontaneous
  Country: US (occurrence: US)
  Receive Date: 20220520
  Receipt Date: 20220520
  Transmission Date: 20220721
  Serious: No
  Sender: FDA-Public Use
  Company Number: US-BRISTOL-MYERS SQUIBB COMPANY-2022-028268

PATIENT
  Age: 70 Year
  Sex: Female

DRUGS (1)
  1. ORENCIA [Suspect]
     Active Substance: ABATACEPT
     Indication: Dermatitis atopic
     Dosage: ONGOING
     Route: 058
     Dates: start: 201805

REACTIONS (3)
  - Joint swelling [Unknown]
  - Arthralgia [Unknown]
  - Intentional product use issue [Unknown]
